FAERS Safety Report 5706306-8 (Version None)
Quarter: 2008Q2

REPORT INFORMATION
  Report Type: 
  Country: None (occurrence: None)
  Receive Date: 20080409
  Receipt Date: 20070719
  Transmission Date: 20081010
  Serious: Yes (Hospitalization)
  Sender: FDA-Public Use
  Company Number: 133

PATIENT
  Sex: Male
  Weight: 81.6475 kg

DRUGS (2)
  1. FAZACLO ODT [Suspect]
     Indication: SCHIZOPHRENIA
     Dosage: 650 MG PO DAILY
     Route: 048
     Dates: start: 20070207, end: 20070520
  2. COGENTIN [Concomitant]

REACTIONS (2)
  - BACTERAEMIA [None]
  - NEUROLEPTIC MALIGNANT SYNDROME [None]
